FAERS Safety Report 6504361-9 (Version None)
Quarter: 2009Q4

REPORT INFORMATION
  Report Type: 
  Country: None (occurrence: None)
  Receive Date: 20091217
  Receipt Date: 20091207
  Transmission Date: 20100525
  Serious: Yes (Hospitalization)
  Sender: FDA-Public Use
  Company Number: JP-ABBOTT-00P-087-0091210-00

PATIENT
  Sex: Female

DRUGS (3)
  1. KLARICID [Suspect]
     Indication: PYREXIA
     Route: 048
     Dates: start: 20000318, end: 20000321
  2. MEIACT [Suspect]
     Indication: PNEUMONIA
     Route: 048
     Dates: start: 20000316, end: 20000317
  3. CEFMETAZOLE SODIUM [Suspect]
     Indication: PYREXIA
     Route: 042
     Dates: start: 20000317, end: 20000321

REACTIONS (5)
  - DEHYDRATION [None]
  - LIVER INJURY [None]
  - PYREXIA [None]
  - RENAL FAILURE ACUTE [None]
  - RHABDOMYOLYSIS [None]
